FAERS Safety Report 25851540 (Version 1)
Quarter: 2025Q3

REPORT INFORMATION
  Report Type: Spontaneous
  Country: US (occurrence: US)
  Receive Date: 20250926
  Receipt Date: 20250926
  Transmission Date: 20251021
  Serious: Yes (Other)
  Sender: MYLAN
  Company Number: US-MYLANLABS-2025M1080688

PATIENT
  Age: 93 Year
  Sex: Male

DRUGS (3)
  1. DIFLUPREDNATE OPHTHALMIC EMULSION [Suspect]
     Active Substance: DIFLUPREDNATE
     Indication: Cystoid macular oedema
     Dosage: UNK UNK, TID, IN LEFT EYE
  2. DIFLUPREDNATE OPHTHALMIC EMULSION [Suspect]
     Active Substance: DIFLUPREDNATE
     Dosage: UNK UNK, BID
  3. PREDNISOLONE ACETATE [Concomitant]
     Active Substance: PREDNISOLONE ACETATE
     Indication: Product used for unknown indication
     Dosage: UNK, QID

REACTIONS (1)
  - Drug ineffective [Unknown]
